FAERS Safety Report 17387972 (Version 2)
Quarter: 2020Q2

REPORT INFORMATION
  Report Type: Spontaneous
  Country: US (occurrence: US)
  Receive Date: 20200206
  Receipt Date: 20200501
  Transmission Date: 20200713
  Serious: No
  Sender: FDA-Public Use
  Company Number: US-RADIUS HEALTH INC.-2020US000372

PATIENT
  Age: 70 Year
  Sex: Female

DRUGS (3)
  1. TYMLOS [Suspect]
     Active Substance: ABALOPARATIDE
     Indication: OSTEOPOROSIS POSTMENOPAUSAL
     Dosage: 80 MCG, DAILY
     Dates: start: 201904
  2. TYMLOS [Suspect]
     Active Substance: ABALOPARATIDE
     Indication: SCOLIOSIS
  3. TYMLOS [Suspect]
     Active Substance: ABALOPARATIDE
     Indication: PLANTAR FASCIITIS

REACTIONS (3)
  - Off label use [Not Recovered/Not Resolved]
  - Pruritus [Unknown]
  - Product dose omission [Unknown]

NARRATIVE: CASE EVENT DATE: 201904
